FAERS Safety Report 22046317 (Version 3)
Quarter: 2023Q1

REPORT INFORMATION
  Report Type: Spontaneous
  Country: US (occurrence: US)
  Receive Date: 20230228
  Receipt Date: 20230318
  Transmission Date: 20230417
  Serious: Yes (Other)
  Sender: FDA-Public Use
  Company Number: US-009507513-2302USA008474

PATIENT
  Age: 36 Year
  Sex: Female
  Weight: 108.4 kg

DRUGS (5)
  1. KEYTRUDA [Suspect]
     Active Substance: PEMBROLIZUMAB
     Indication: Breast cancer metastatic
     Dosage: 200 MILLIGRAM, Q3W TOTAL 7 CYCLES
     Route: 042
     Dates: start: 20220804, end: 20230209
  2. PREDNISONE [Concomitant]
     Active Substance: PREDNISONE
  3. XGEVA [Concomitant]
     Active Substance: DENOSUMAB
  4. IBUPROFEN [Concomitant]
     Active Substance: IBUPROFEN
  5. ABRAXANE [Concomitant]
     Active Substance: PACLITAXEL

REACTIONS (1)
  - Rash [Not Recovered/Not Resolved]

NARRATIVE: CASE EVENT DATE: 20230206
